FAERS Safety Report 22044665 (Version 2)
Quarter: 2023Q4

REPORT INFORMATION
  Report Type: Spontaneous
  Country: GB (occurrence: GB)
  Receive Date: 20230228
  Receipt Date: 20231005
  Transmission Date: 20240109
  Serious: Yes (Other)
  Sender: FDA-Public Use
  Company Number: GB-PFIZER INC-PV202300031037

PATIENT
  Age: 33 Year
  Sex: Male

DRUGS (4)
  1. DEPO-MEDROL [Suspect]
     Active Substance: METHYLPREDNISOLONE ACETATE
     Indication: Cervical radiculopathy
     Dosage: 80 MG(2 ML)
     Route: 008
  2. POLYETHYLENE GLYCOLS [Suspect]
     Active Substance: POLYETHYLENE GLYCOLS
     Route: 008
  3. LIDOCAINE [Concomitant]
     Active Substance: LIDOCAINE
     Indication: Cervical radiculopathy
     Dosage: 0.5%, (2 ML)
     Route: 008
  4. SODIUM CHLORIDE [Concomitant]
     Active Substance: SODIUM CHLORIDE
     Route: 008

REACTIONS (3)
  - Toxic neuropathy [Recovering/Resolving]
  - Neuralgia [Recovering/Resolving]
  - Off label use [Unknown]
